FAERS Safety Report 5130446-8 (Version None)
Quarter: 2006Q4

REPORT INFORMATION
  Report Type: 
  Country: None (occurrence: None)
  Receive Date: 20061013
  Receipt Date: 20060929
  Transmission Date: 20070319
  Serious: Yes (Other)
  Sender: FDA-Public Use
  Company Number: US200610000282

PATIENT
  Age: 72 Year
  Sex: Female

DRUGS (7)
  1. FORTEO [Suspect]
     Indication: OSTEOPOROSIS
     Dates: start: 20051001
  2. FORTEO [Concomitant]
  3. PRILOSEC [Concomitant]
  4. CLARITIN /USA/ (LORATADINE) [Concomitant]
  5. COZAAR [Concomitant]
  6. ZOCOR [Concomitant]
  7. CALTRATE + D (CALCIUM CARBONATE, COLECALCIFEROL) [Concomitant]

REACTIONS (4)
  - BREAST CANCER FEMALE [None]
  - DRUG INTOLERANCE [None]
  - FATIGUE [None]
  - PHARMACEUTICAL PRODUCT COMPLAINT [None]
